FAERS Safety Report 14628483 (Version 3)
Quarter: 2018Q2

REPORT INFORMATION
  Report Type: Report from Study
  Country: JP (occurrence: JP)
  Receive Date: 20180312
  Receipt Date: 20180423
  Transmission Date: 20180711
  Serious: Yes (Other)
  Sender: FDA-Public Use
  Company Number: PHJP2017JP037178

PATIENT
  Age: 62 Year
  Sex: Male
  Weight: 71.6 kg

DRUGS (23)
  1. MYSER [Concomitant]
     Active Substance: DIFLUPREDNATE
     Indication: PSORIASIS
     Dosage: TOPICAL USE, BID
     Route: 061
     Dates: start: 20170728, end: 20170920
  2. MYSER [Concomitant]
     Active Substance: DIFLUPREDNATE
     Dosage: TOPICAL USE, BID
     Route: 061
     Dates: start: 20170921
  3. CLARITIN [Concomitant]
     Active Substance: LORATADINE
     Indication: PRURITUS
     Dosage: 10 MG, UNK
     Route: 048
     Dates: start: 20171122, end: 20171129
  4. ONON [Concomitant]
     Active Substance: PRANLUKAST
     Indication: ASTHMA
     Dosage: 225 MG, UNK
     Route: 048
     Dates: end: 20170706
  5. ALEVIATIN [Concomitant]
     Active Substance: PHENYTOIN SODIUM
     Indication: EPILEPSY
     Dosage: 150 MG, UNK
     Route: 048
  6. CEFCAPENE PIVOXIL HYDROCHLORIDE [Concomitant]
     Active Substance: CEFCAPENE PIVOXIL HYDROCHLORIDE
     Indication: SKIN BACTERIAL INFECTION
     Dosage: 300 MG, UNK
     Route: 048
     Dates: start: 20171213, end: 20171215
  7. ONON [Concomitant]
     Active Substance: PRANLUKAST
     Indication: RHINITIS ALLERGIC
     Dosage: 225 MG, UNK
     Route: 048
     Dates: start: 20170728, end: 20171129
  8. ONON [Concomitant]
     Active Substance: PRANLUKAST
     Dosage: 450 MG, UNK
     Route: 048
     Dates: start: 20171130, end: 20171205
  9. COSENTYX [Suspect]
     Active Substance: SECUKINUMAB
     Dosage: 300 MG, 4W
     Route: 058
     Dates: start: 20170905, end: 20170905
  10. ZYLORIC [Concomitant]
     Active Substance: ALLOPURINOL
     Indication: HYPERURICAEMIA
     Dosage: 200 MG, UNK
     Route: 048
  11. AZUNOL [Concomitant]
     Active Substance: SODIUM GUALENATE
     Dosage: TOPICAL USE, BID
     Route: 061
     Dates: start: 20170921
  12. CLARITIN [Concomitant]
     Active Substance: LORATADINE
     Dosage: 20 MG, UNK
     Route: 048
     Dates: start: 20171130, end: 20171205
  13. CALONAL [Concomitant]
     Active Substance: ACETAMINOPHEN
     Indication: HEADACHE
     Dosage: 300 MG, PRN
     Route: 048
     Dates: start: 20171205, end: 20171215
  14. FAMOTIDINE. [Concomitant]
     Active Substance: FAMOTIDINE
     Indication: GASTRIC ULCER
     Dosage: 20 MG, UNK
     Route: 048
     Dates: start: 20171207, end: 20171219
  15. COSENTYX [Suspect]
     Active Substance: SECUKINUMAB
     Indication: PUSTULAR PSORIASIS
     Dosage: 300 MG, QW
     Route: 058
     Dates: start: 20170707, end: 20170804
  16. COSENTYX [Suspect]
     Active Substance: SECUKINUMAB
     Dosage: 300 MG, 4W
     Route: 058
     Dates: start: 20171006, end: 20171006
  17. PATANOL [Concomitant]
     Active Substance: OLOPATADINE HYDROCHLORIDE
     Indication: CONJUNCTIVITIS ALLERGIC
     Dosage: UNK UNK, TID
     Route: 047
     Dates: start: 20171006
  18. TEGRETOL [Concomitant]
     Active Substance: CARBAMAZEPINE
     Indication: EPILEPSY
     Dosage: 200 MG, UNK
     Route: 048
  19. HEPARINOID [Concomitant]
     Active Substance: CHONDROITIN SULFATE (BOVINE)
     Indication: PSORIASIS
     Dosage: TOPICAL USE, BID
     Route: 061
     Dates: start: 20171122
  20. LIPIDIL [Concomitant]
     Active Substance: FENOFIBRATE
     Indication: HYPERLIPIDAEMIA
     Dosage: 106.6 MG, UNK
     Route: 048
  21. AZUNOL [Concomitant]
     Active Substance: SODIUM GUALENATE
     Indication: PSORIASIS
     Dosage: TOPICAL USE, BID
     Route: 061
     Dates: start: 20170728, end: 20170920
  22. OXAROL [Concomitant]
     Active Substance: MAXACALCITOL
     Indication: PSORIASIS
     Dosage: TOPICAL USE, BID
     Route: 061
     Dates: start: 20171122
  23. MIYA-BM [Concomitant]
     Active Substance: CLOSTRIDIUM BUTYRICUM SPORES STRAIN M-55
     Indication: DIARRHOEA
     Dosage: 9 G, UNK
     Route: 048
     Dates: start: 20170901, end: 20170906

REACTIONS (18)
  - Face oedema [Unknown]
  - Pyrexia [Recovered/Resolved]
  - Pyelonephritis [Recovered/Resolved]
  - Drug eruption [Recovered/Resolved]
  - Eosinophil count increased [Unknown]
  - Gallbladder enlargement [Unknown]
  - Pyelonephritis [Recovered/Resolved]
  - Diabetes mellitus [Unknown]
  - Hepatic steatosis [Unknown]
  - Herpes zoster [Recovering/Resolving]
  - Bacterial infection [Recovered/Resolved]
  - Concomitant disease aggravated [Unknown]
  - Erysipelas [Recovered/Resolved]
  - Bacterial infection [Recovered/Resolved]
  - Skin erosion [Recovered/Resolved]
  - Erythema [Unknown]
  - Conjunctivitis allergic [Unknown]
  - Localised oedema [Recovered/Resolved]

NARRATIVE: CASE EVENT DATE: 201708
